FAERS Safety Report 10052768 (Version 2)
Quarter: 2014Q2

REPORT INFORMATION
  Report Type: Spontaneous
  Country: BE (occurrence: BE)
  Receive Date: 20140402
  Receipt Date: 20140402
  Transmission Date: 20141212
  Serious: Yes (Death, Hospitalization, Other)
  Sender: FDA-Public Use
  Company Number: BE-BAXTER-2014BAX015612

PATIENT
  Age: 84 Year
  Sex: Female

DRUGS (1)
  1. EXTRANEAL 7,5%, SOLUTION POUR DIALYSE P?RITON?ALE [Suspect]
     Indication: RENAL FAILURE CHRONIC
     Route: 033
     Dates: end: 20140321

REACTIONS (3)
  - Therapy cessation [Fatal]
  - General physical health deterioration [Fatal]
  - Loss of consciousness [Unknown]
